FAERS Safety Report 24395709 (Version 2)
Quarter: 2025Q1

REPORT INFORMATION
  Report Type: Spontaneous
  Country: GB (occurrence: GB)
  Receive Date: 20241004
  Receipt Date: 20250122
  Transmission Date: 20250409
  Serious: Yes (Other)
  Sender: AUROBINDO
  Company Number: GB-AUROBINDO-AUR-APL-2024-047186

PATIENT
  Sex: Female

DRUGS (12)
  1. AMISULPRIDE [Suspect]
     Active Substance: AMISULPRIDE
     Indication: Schizoaffective disorder
     Route: 065
  2. ARIPIPRAZOLE [Suspect]
     Active Substance: ARIPIPRAZOLE
     Indication: Schizoaffective disorder
     Route: 065
  3. OLANZAPINE [Suspect]
     Active Substance: OLANZAPINE
     Indication: Schizoaffective disorder
     Route: 065
  4. CLOZAPINE [Concomitant]
     Active Substance: CLOZAPINE
     Indication: Schizoaffective disorder
     Route: 065
  5. CLOZAPINE [Concomitant]
     Active Substance: CLOZAPINE
     Route: 030
  6. CLOZAPINE [Concomitant]
     Active Substance: CLOZAPINE
     Route: 030
  7. CLOZAPINE [Concomitant]
     Active Substance: CLOZAPINE
     Route: 030
  8. CLOZAPINE [Concomitant]
     Active Substance: CLOZAPINE
     Route: 030
  9. CLOZAPINE [Concomitant]
     Active Substance: CLOZAPINE
     Route: 030
  10. CLOZAPINE [Concomitant]
     Active Substance: CLOZAPINE
     Route: 030
  11. LITHIUM [Concomitant]
     Active Substance: LITHIUM
     Indication: Schizoaffective disorder
     Route: 065
  12. LORAZEPAM [Concomitant]
     Active Substance: LORAZEPAM
     Indication: Schizoaffective disorder
     Route: 065

REACTIONS (4)
  - Hallucination, auditory [Recovering/Resolving]
  - Treatment failure [Unknown]
  - Paranoia [Recovering/Resolving]
  - Catatonia [Recovered/Resolved]
